FAERS Safety Report 22349659 (Version 1)
Quarter: 2023Q2

REPORT INFORMATION
  Report Type: Spontaneous
  Country: FR (occurrence: FR)
  Receive Date: 20230522
  Receipt Date: 20230522
  Transmission Date: 20230722
  Serious: Yes (Other)
  Sender: FDA-Public Use
  Company Number: FR-MACLEODS PHARMACEUTICALS US LTD-MAC2023041402

PATIENT

DRUGS (6)
  1. TENOFOVIR [Suspect]
     Active Substance: TENOFOVIR
     Indication: HIV infection
     Dosage: UNK
     Route: 065
  2. LOPINAVIR\RITONAVIR [Concomitant]
     Active Substance: LOPINAVIR\RITONAVIR
     Indication: HIV infection
     Dosage: UNK
     Route: 065
  3. ATAZANAVIR [Concomitant]
     Active Substance: ATAZANAVIR
     Indication: HIV infection
     Dosage: UNK
     Route: 065
  4. LAMIVUDINE [Concomitant]
     Active Substance: LAMIVUDINE
     Indication: HIV infection
     Dosage: UNK
     Route: 065
  5. Ketoprophen [Concomitant]
     Indication: Pain in extremity
     Dosage: UNK(NON STEROIDAL ANTI INFLAMMATORY DRUGS(NSAIDS))
     Route: 065
  6. DICLOFENAC [Concomitant]
     Active Substance: DICLOFENAC
     Indication: Pain in extremity
     Dosage: UNK(NON STEROIDAL ANTI INFLAMMATORY DRUGS(NSAIDS))
     Route: 065

REACTIONS (5)
  - Nephropathy toxic [Recovered/Resolved]
  - Renal tubular dysfunction [Recovered/Resolved]
  - Acute kidney injury [Recovered/Resolved]
  - Osteomalacia [Recovered/Resolved]
  - Fracture [Recovered/Resolved]
